FAERS Safety Report 16173240 (Version 1)
Quarter: 2019Q2

REPORT INFORMATION
  Report Type: Spontaneous
  Country: US (occurrence: US)
  Receive Date: 20190408
  Receipt Date: 20190408
  Transmission Date: 20190711
  Serious: No
  Sender: FDA-Public Use
  Company Number: None

PATIENT
  Age: 52 Year
  Sex: Female
  Weight: 166.5 kg

DRUGS (1)
  1. BUPROPION XL 450 MG TABLETS [Suspect]
     Active Substance: BUPROPION HYDROCHLORIDE
     Indication: DEPRESSION
     Dosage: ?          QUANTITY:30 TABLET(S);?
     Route: 048
     Dates: start: 20181106, end: 20190408

REACTIONS (8)
  - Antisocial behaviour [None]
  - Insomnia [None]
  - Lethargy [None]
  - Product substitution issue [None]
  - Depression [None]
  - Feeling abnormal [None]
  - Anger [None]
  - Crying [None]

NARRATIVE: CASE EVENT DATE: 20181201
